FAERS Safety Report 21909941 (Version 4)
Quarter: 2023Q2

REPORT INFORMATION
  Report Type: Spontaneous
  Country: JP (occurrence: JP)
  Receive Date: 20230125
  Receipt Date: 20230412
  Transmission Date: 20230721
  Serious: Yes (Other)
  Sender: FDA-Public Use
  Company Number: JP-002147023-NVSJ2023JP001178

PATIENT
  Age: 57 Year
  Sex: Male
  Weight: 86 kg

DRUGS (7)
  1. NEORAL [Suspect]
     Active Substance: CYCLOSPORINE
     Indication: Pityriasis rubra pilaris
     Dosage: UNK, SMALL AMOUNT
     Route: 048
  2. NEORAL [Suspect]
     Active Substance: CYCLOSPORINE
     Dosage: 75 MG, BID
     Route: 048
     Dates: start: 20201022, end: 20201104
  3. NEORAL [Suspect]
     Active Substance: CYCLOSPORINE
     Dosage: 50 MG, BID
     Route: 048
     Dates: start: 20201105, end: 20201209
  4. ETRETINATE [Concomitant]
     Active Substance: ETRETINATE
     Indication: Pityriasis rubra pilaris
     Dosage: 30 UNK
     Route: 048
  5. ETRETINATE [Concomitant]
     Active Substance: ETRETINATE
     Dosage: 30 MG
     Route: 048
  6. LEVOCETIRIZINE [Concomitant]
     Active Substance: LEVOCETIRIZINE
     Indication: Pityriasis rubra pilaris
     Dosage: 5 MG, QD
     Route: 048
     Dates: start: 20200827, end: 20210825
  7. BEZAFIBRATE [Concomitant]
     Active Substance: BEZAFIBRATE
     Indication: Dyslipidaemia
     Dosage: 200 MG, BID
     Route: 048
     Dates: start: 20200924, end: 20221023

REACTIONS (5)
  - Renal impairment [Recovered/Resolved]
  - Pityriasis rubra pilaris [Recovering/Resolving]
  - Rash [Recovering/Resolving]
  - Condition aggravated [Recovering/Resolving]
  - Drug ineffective for unapproved indication [Unknown]

NARRATIVE: CASE EVENT DATE: 20201105
